FAERS Safety Report 9887809 (Version 1)
Quarter: 2013Q4

REPORT INFORMATION
  Report Type: Spontaneous
  Country: US (occurrence: None)
  Receive Date: 20131223
  Receipt Date: 20131223
  Transmission Date: 20140711
  Serious: No
  Sender: FDA-Public Use
  Company Number: 220626LEO

PATIENT
  Age: 61 Year
  Sex: Female

DRUGS (5)
  1. PICATO (0.05%) [Suspect]
     Indication: PRECANCEROUS SKIN LESION
     Dosage: 1 IN 1 D
     Route: 061
     Dates: start: 20130213, end: 20130215
  2. THYROID [Concomitant]
  3. ESTROGEN [Concomitant]
  4. WELLBUTRIN (BUPROPION) [Concomitant]
  5. CYMBALTA (DULOXETINE HYDROCHLORIDE) [Concomitant]

REACTIONS (11)
  - Blister [None]
  - Eye swelling [None]
  - Application site vesicles [None]
  - Application site scab [None]
  - Application site pain [None]
  - Application site pustules [None]
  - Application site pain [None]
  - Application site erythema [None]
  - Local swelling [None]
  - Incorrect dose administered [None]
  - Drug administered at inappropriate site [None]
